FAERS Safety Report 16964748 (Version 2)
Quarter: 2020Q1

REPORT INFORMATION
  Report Type: Spontaneous
  Country: CA (occurrence: CA)
  Receive Date: 20191028
  Receipt Date: 20200326
  Transmission Date: 20200409
  Serious: Yes (Hospitalization)
  Sender: FDA-Public Use
  Company Number: CA-009507513-1910CAN014949

PATIENT
  Age: 6 Year
  Sex: Male
  Weight: 23 kg

DRUGS (8)
  1. RAPAMUNE [Suspect]
     Active Substance: SIROLIMUS
     Indication: IMMUNOSUPPRESSION
     Dosage: 1 MILLIGRAM, 2 EVERY 1 DAY
     Route: 048
  2. CEFTRIAXONE. [Concomitant]
     Active Substance: CEFTRIAXONE
  3. POSANOL [Suspect]
     Active Substance: POSACONAZOLE
     Indication: ANTIFUNGAL PROPHYLAXIS
     Dosage: 100 MILLIGRAM, 1 EVERY 1 DAY
     Route: 048
  4. JAKAVI [Concomitant]
     Active Substance: RUXOLITINIB
  5. RITUXIMAB. [Concomitant]
     Active Substance: RITUXIMAB
  6. SULFAMETHOXAZOLE (+) TRIMETHOPRIM [Concomitant]
     Active Substance: SULFAMETHOXAZOLE\TRIMETHOPRIM
  7. FAMCICLOVIR. [Concomitant]
     Active Substance: FAMCICLOVIR
  8. PENICILLIN (UNSPECIFIED) [Concomitant]
     Active Substance: PENICILLIN

REACTIONS (5)
  - Drug interaction [Unknown]
  - Overdose [Unknown]
  - Microangiopathy [Unknown]
  - Off label use [Unknown]
  - Product use issue [Unknown]
